FAERS Safety Report 6696101-8 (Version None)
Quarter: 2010Q2

REPORT INFORMATION
  Report Type: 
  Country: None (occurrence: None)
  Receive Date: 20100426
  Receipt Date: 20100421
  Transmission Date: 20101027
  Serious: Yes (Hospitalization)
  Sender: FDA-Public Use
  Company Number: FR-ASTRAZENECA-2010SE18050

PATIENT
  Age: 54 Year
  Sex: Male

DRUGS (5)
  1. CRESTOR [Suspect]
     Indication: HYPERCHOLESTEROLAEMIA
     Route: 048
     Dates: start: 20100305, end: 20100306
  2. SINEMET [Concomitant]
     Dosage: 250 E.R
     Route: 048
  3. REQUIP [Concomitant]
     Dosage: E.R
     Route: 048
  4. PLAVIX [Concomitant]
  5. KARDEGIC [Concomitant]

REACTIONS (4)
  - ABDOMINAL PAIN UPPER [None]
  - CHEST PAIN [None]
  - ERUCTATION [None]
  - RASH ERYTHEMATOUS [None]
